FAERS Safety Report 6971033-6 (Version None)
Quarter: 2010Q3

REPORT INFORMATION
  Report Type: 
  Country: None (occurrence: None)
  Receive Date: 20100824
  Receipt Date: 20100223
  Transmission Date: 20110219
  Serious: Yes (Other)
  Sender: FDA-Public Use
  Company Number: 2010024256

PATIENT
  Sex: Female

DRUGS (2)
  1. NORVASC [Suspect]
  2. LABETALOL HCL [Concomitant]

REACTIONS (1)
  - BLOOD GLUCOSE INCREASED [None]
